FAERS Safety Report 19185372 (Version 1)
Quarter: 2021Q2

REPORT INFORMATION
  Report Type: Spontaneous
  Country: GB (occurrence: GB)
  Receive Date: 20210427
  Receipt Date: 20210427
  Transmission Date: 20210717
  Serious: Yes (Life-Threatening, Other)
  Sender: FDA-Public Use
  Company Number: GB-JNJFOC-20210432467

PATIENT
  Age: 10 Year
  Sex: Female
  Weight: 27.21 kg

DRUGS (4)
  1. CALPROFEN UNSPECIFIED [Suspect]
     Active Substance: IBUPROFEN
     Indication: HEADACHE
     Route: 048
     Dates: start: 20200208, end: 20200208
  2. SERETIDE [Concomitant]
     Active Substance: FLUTICASONE PROPIONATE\SALMETEROL XINAFOATE
     Indication: PRODUCT USED FOR UNKNOWN INDICATION
     Dosage: SALMETEROL/ FLUTICASONE PROPIONATE MICRONISED/ SALMETEROL XINAFOATE MICRONISED/ FLUTICASONE PROPIONA
     Route: 065
  3. MONTELUKAST [Concomitant]
     Active Substance: MONTELUKAST SODIUM
     Indication: PRODUCT USED FOR UNKNOWN INDICATION
     Route: 065
  4. VENTOLIN [Concomitant]
     Active Substance: ALBUTEROL SULFATE
     Indication: PRODUCT USED FOR UNKNOWN INDICATION
     Dosage: SALBUTAMOL SULPHATE MICRONISED/ SALBUTAMOL SULPHATE/ SALBUTAMOL BASE/ SALBUTAMOL
     Route: 065

REACTIONS (2)
  - Hypersensitivity [Recovered/Resolved]
  - Wheezing [Recovered/Resolved]

NARRATIVE: CASE EVENT DATE: 20200208
